FAERS Safety Report 9352638 (Version 1)
Quarter: 2013Q2

REPORT INFORMATION
  Report Type: Spontaneous
  Country: US (occurrence: US)
  Receive Date: 20130618
  Receipt Date: 20130618
  Transmission Date: 20140414
  Serious: No
  Sender: FDA-Public Use
  Company Number: US-B.I. PHARMACEUTICALS,INC./RIDGEFIELD-2013-BI-16976BP

PATIENT
  Age: 50 Year
  Sex: Female

DRUGS (3)
  1. JENTADUETO [Suspect]
     Indication: TYPE 2 DIABETES MELLITUS
     Dosage: STRENGTH: 2.5 MG / 1000 MG; DAILY DOSE: 5 MG/ 2000 MG
     Route: 048
     Dates: start: 20130603, end: 20130610
  2. LIPITOR [Concomitant]
     Dosage: 20 MG
     Route: 048
  3. LISINOPRIL [Concomitant]
     Dosage: 30 MG
     Route: 048

REACTIONS (1)
  - Angioedema [Unknown]
